FAERS Safety Report 10243545 (Version 1)
Quarter: 2014Q2

REPORT INFORMATION
  Report Type: Spontaneous
  Country: US (occurrence: None)
  Receive Date: 20140616
  Receipt Date: 20140616
  Transmission Date: 20141212
  Serious: Yes (Life-Threatening)
  Sender: FDA-Public Use
  Company Number: None

PATIENT
  Age: 37 Year
  Sex: Female
  Weight: 106.2 kg

DRUGS (4)
  1. PROPOFOL [Suspect]
     Indication: SURGERY
     Route: 042
     Dates: start: 20140609, end: 20140609
  2. PROPOFOL [Suspect]
     Indication: SEDATION
     Route: 042
     Dates: start: 20140609, end: 20140609
  3. CEFAZOLIN [Suspect]
     Indication: SURGERY
     Dosage: 1 GM ONCE IV
     Route: 042
     Dates: start: 20140609, end: 20140609
  4. CEFAZOLIN [Suspect]
     Indication: ANTIBIOTIC PROPHYLAXIS
     Dosage: 1 GM ONCE IV
     Route: 042
     Dates: start: 20140609, end: 20140609

REACTIONS (8)
  - Tachycardia [None]
  - Tachypnoea [None]
  - Salivary hypersecretion [None]
  - Hypotension [None]
  - Hypoxia [None]
  - Anaphylactic reaction [None]
  - Nausea [None]
  - Vomiting [None]
